FAERS Safety Report 20516550 (Version 1)
Quarter: 2022Q1

REPORT INFORMATION
  Report Type: Spontaneous
  Country: US (occurrence: US)
  Receive Date: 20220225
  Receipt Date: 20220225
  Transmission Date: 20220423
  Serious: Yes (Hospitalization, Other)
  Sender: FDA-Public Use
  Company Number: US-CIPLA LTD.-2022US01031

PATIENT

DRUGS (1)
  1. AMLODIPINE [Suspect]
     Active Substance: AMLODIPINE BESYLATE
     Dosage: UNK
     Route: 048

REACTIONS (8)
  - Acute respiratory distress syndrome [Recovering/Resolving]
  - Lactic acidosis [Unknown]
  - Condition aggravated [Unknown]
  - Pleural effusion [Unknown]
  - Pericardial effusion [Unknown]
  - Overdose [Unknown]
  - Shock [Unknown]
  - Tachycardia [Unknown]
